FAERS Safety Report 13339535 (Version 18)
Quarter: 2017Q4

REPORT INFORMATION
  Report Type: Spontaneous
  Country: US (occurrence: US)
  Receive Date: 20170315
  Receipt Date: 20171006
  Transmission Date: 20180320
  Serious: Yes (Death, Hospitalization, Other)
  Sender: FDA-Public Use
  Company Number: US-ACTELION-A-NJ2017-150725

PATIENT
  Age: 74 Year
  Sex: Female
  Weight: 107.48 kg

DRUGS (7)
  1. LETAIRIS [Suspect]
     Active Substance: AMBRISENTAN
     Dosage: 10 MG, QD
     Route: 065
     Dates: start: 20170621
  2. OXYGEN. [Concomitant]
     Active Substance: OXYGEN
  3. LETAIRIS [Suspect]
     Active Substance: AMBRISENTAN
     Indication: PRODUCT USED FOR UNKNOWN INDICATION
     Dosage: 5 MG, QD
     Route: 065
  4. VELETRI [Suspect]
     Active Substance: EPOPROSTENOL
     Dosage: 14.14 NG/KG, PER MIN
     Route: 042
  5. VELETRI [Suspect]
     Active Substance: EPOPROSTENOL
     Indication: PULMONARY ARTERIAL HYPERTENSION
     Dosage: 5.14 NG/KG, PER MIN
     Route: 042
  6. VELETRI [Suspect]
     Active Substance: EPOPROSTENOL
     Dosage: 16.14 NG/KG, PER MIN
     Route: 042
  7. SILDENAFIL CITRATE. [Concomitant]
     Active Substance: SILDENAFIL CITRATE

REACTIONS (28)
  - Catheter site induration [Unknown]
  - Nausea [Recovering/Resolving]
  - Condition aggravated [Unknown]
  - Loss of consciousness [Unknown]
  - Catheter management [Unknown]
  - Arthritis [Unknown]
  - Malaise [Not Recovered/Not Resolved]
  - Chest discomfort [Unknown]
  - Heart rate increased [Unknown]
  - Catheter site discharge [Unknown]
  - Headache [Not Recovered/Not Resolved]
  - Breast cancer [Not Recovered/Not Resolved]
  - Hypotension [Unknown]
  - Chest pain [Not Recovered/Not Resolved]
  - Dyspnoea exertional [Not Recovered/Not Resolved]
  - Death [Fatal]
  - Catheter site infection [Unknown]
  - Flushing [Unknown]
  - Dyspnoea [Not Recovered/Not Resolved]
  - Presyncope [Not Recovered/Not Resolved]
  - Catheter site abscess [Unknown]
  - Oxygen saturation decreased [Unknown]
  - Catheter site erythema [Unknown]
  - Back pain [Not Recovered/Not Resolved]
  - Xanthopsia [Not Recovered/Not Resolved]
  - Hyperhidrosis [Unknown]
  - Catheter site pruritus [Unknown]
  - Device alarm issue [Unknown]

NARRATIVE: CASE EVENT DATE: 20170417
